FAERS Safety Report 6662082-6 (Version None)
Quarter: 2010Q1

REPORT INFORMATION
  Report Type: 
  Country: None (occurrence: None)
  Receive Date: 20100331
  Receipt Date: 20100319
  Transmission Date: 20100710
  Serious: Yes (Other)
  Sender: FDA-Public Use
  Company Number: US-PFIZER INC-2008095258

PATIENT
  Sex: Female
  Weight: 92.063 kg

DRUGS (29)
  1. CHANTIX [Suspect]
     Indication: SMOKING CESSATION THERAPY
     Dosage: 0.5 MG, 1X/DAY
     Route: 048
     Dates: start: 20070101
  2. CHANTIX [Suspect]
     Dosage: UNK, TWICE DAILY
     Dates: start: 20070527, end: 20080101
  3. CHANTIX [Suspect]
     Dosage: UNK
     Dates: start: 20090901, end: 20100101
  4. AMBIEN [Concomitant]
  5. LAMICTAL CD [Concomitant]
     Indication: BIPOLAR DISORDER
     Dosage: 100 MG, UNK
  6. LEXAPRO [Concomitant]
     Dosage: 20 MG, UNK
  7. NEXIUM [Concomitant]
  8. SUDAFED 12 HOUR [Concomitant]
     Indication: SEASONAL ALLERGY
     Dosage: UNK, 3X/DAY
  9. RISPERDAL [Concomitant]
  10. TOPAMAX [Concomitant]
     Indication: MIGRAINE
     Dosage: 100 MG, UNK
  11. VALIUM [Concomitant]
  12. IMITREX [Concomitant]
     Indication: MIGRAINE
     Dosage: 50 MG, UNK
  13. IBUPROFEN [Concomitant]
  14. ASTHALIN [Concomitant]
  15. ACETYLSALICYLIC ACID [Concomitant]
  16. CLARINEX [Concomitant]
     Indication: SEASONAL ALLERGY
     Dosage: 5 MG, 1X/DAY
  17. NASONEX [Concomitant]
     Indication: SEASONAL ALLERGY
  18. DARVOCET [Concomitant]
     Dosage: 100/650MG
  19. SINGULAIR [Concomitant]
     Indication: ASTHMA
     Dosage: 10 MG, 1X/DAY
  20. EPIPEN [Concomitant]
  21. PROTONIX [Concomitant]
     Indication: GASTROOESOPHAGEAL REFLUX DISEASE
     Dosage: 40 MG, UNK
  22. SEROQUEL [Concomitant]
     Indication: BIPOLAR DISORDER
     Dosage: 50 MG, UNK
  23. SYMBICORT [Concomitant]
     Dosage: UNK, 2X/DAY
  24. MULTI-VITAMINS [Concomitant]
  25. NAPROXEN [Concomitant]
     Dosage: 500 MG, UNK
  26. MOTRIN [Concomitant]
     Indication: ARTHRITIS
  27. BENADRYL [Concomitant]
     Indication: HYPERSENSITIVITY
  28. ZINC [Concomitant]
     Indication: DYSPNOEA
     Dosage: 50 MG, UNK
  29. ALBUTEROL [Concomitant]
     Indication: DYSPNOEA

REACTIONS (10)
  - AGGRESSION [None]
  - ANKLE FRACTURE [None]
  - BIPOLAR DISORDER [None]
  - CARPAL TUNNEL SYNDROME [None]
  - HYPOTHYROIDISM [None]
  - LOWER LIMB FRACTURE [None]
  - MOOD ALTERED [None]
  - TENDONITIS [None]
  - ULNAR NERVE INJURY [None]
  - VERTIGO [None]
